FAERS Safety Report 11477310 (Version 2)
Quarter: 2016Q2

REPORT INFORMATION
  Report Type: Spontaneous
  Country: US (occurrence: US)
  Receive Date: 20150909
  Receipt Date: 20160406
  Transmission Date: 20160815
  Serious: Yes (Other)
  Sender: FDA-Public Use
  Company Number: US-JAZZ-2015-US-008258

PATIENT
  Age: 27 Year
  Sex: Female
  Weight: 119.27 kg

DRUGS (5)
  1. XYREM [Suspect]
     Active Substance: SODIUM OXYBATE
     Indication: CATAPLEXY
     Dosage: 3 G, BID
     Route: 048
     Dates: start: 2015
  2. METHYLPHENIDATE. [Concomitant]
     Active Substance: METHYLPHENIDATE
     Indication: PRODUCT USED FOR UNKNOWN INDICATION
     Dosage: UNK
     Dates: start: 20141029
  3. PROTRIPTYLINE HCL [Concomitant]
     Indication: PRODUCT USED FOR UNKNOWN INDICATION
     Dosage: UNK
     Dates: start: 20141029
  4. XYREM [Suspect]
     Active Substance: SODIUM OXYBATE
     Indication: NARCOLEPSY
     Dosage: 4.5 G, BID
     Route: 048
     Dates: start: 201411, end: 2015
  5. MODAFINIL. [Concomitant]
     Active Substance: MODAFINIL
     Indication: PRODUCT USED FOR UNKNOWN INDICATION
     Dosage: UNK
     Dates: start: 201502, end: 2015

REACTIONS (13)
  - Renal disorder [Unknown]
  - Nephrolithiasis [Unknown]
  - Intentional overdose [Unknown]
  - Gestational diabetes [Unknown]
  - Hypertension [Not Recovered/Not Resolved]
  - Pre-eclampsia [Unknown]
  - Feeling abnormal [Unknown]
  - Exposure during pregnancy [Recovered/Resolved]
  - Insomnia [Unknown]
  - Malaise [Recovered/Resolved]
  - Parasomnia [Unknown]
  - Vomiting [Recovered/Resolved]
  - Feeling drunk [Unknown]

NARRATIVE: CASE EVENT DATE: 201503
